FAERS Safety Report 9733553 (Version 4)
Quarter: 2014Q1

REPORT INFORMATION
  Report Type: Spontaneous
  Country: US (occurrence: US)
  Receive Date: 20131205
  Receipt Date: 20140220
  Transmission Date: 20141002
  Serious: Yes (Death)
  Sender: FDA-Public Use
  Company Number: US-INCYTE CORPORATION-2013IN001689

PATIENT
  Sex: Male
  Weight: 68.03 kg

DRUGS (1)
  1. JAKAFI [Suspect]
     Indication: MYELOFIBROSIS
     Dosage: 5 MG, 2 Q AM, 1 Q PM
     Route: 048
     Dates: start: 20120522, end: 20130630

REACTIONS (2)
  - Acute myeloid leukaemia [Fatal]
  - Diarrhoea [Unknown]
